FAERS Safety Report 22647637 (Version 2)
Quarter: 2023Q2

REPORT INFORMATION
  Report Type: Report from Study
  Country: GB (occurrence: GB)
  Receive Date: 20230628
  Receipt Date: 20230628
  Transmission Date: 20230721
  Serious: Yes (Other)
  Sender: FDA-Public Use
  Company Number: GB-ABBVIE-5304797

PATIENT
  Age: 39 Year
  Sex: Male
  Weight: 35.834 kg

DRUGS (11)
  1. HUMIRA [Suspect]
     Active Substance: ADALIMUMAB
     Indication: Colitis ulcerative
     Route: 058
     Dates: start: 20161123, end: 20170907
  2. LEVEMIR [Concomitant]
     Active Substance: INSULIN DETEMIR
     Indication: Type 1 diabetes mellitus
     Route: 058
     Dates: start: 20180222
  3. NOVORAPID [Concomitant]
     Active Substance: INSULIN ASPART
     Indication: Type 1 diabetes mellitus
     Dosage: TIME INTERVAL: 0.33333333 DAYS
     Route: 058
     Dates: start: 20180222
  4. OMEPRAZOLE [Concomitant]
     Active Substance: OMEPRAZOLE
     Indication: Gastrointestinal disorder prophylaxis
     Route: 048
     Dates: start: 20191127
  5. ACETAMINOPHEN [Concomitant]
     Active Substance: ACETAMINOPHEN
     Indication: Postoperative analgesia
     Route: 048
     Dates: start: 20191127
  6. IBUPROFEN [Concomitant]
     Active Substance: IBUPROFEN
     Indication: Postoperative analgesia
     Dosage: TIME INTERVAL: 0.33333333 DAYS
     Route: 048
     Dates: start: 20191127
  7. CODEINE [Concomitant]
     Active Substance: CODEINE
     Indication: Postoperative analgesia
     Route: 048
     Dates: start: 20191127
  8. COLESEVELAM [Concomitant]
     Active Substance: COLESEVELAM
     Indication: Bile acids
     Dosage: TIME INTERVAL: 0.33333333 DAYS
     Route: 048
     Dates: start: 20191127
  9. OXYCODONE HYDROCHLORIDE [Concomitant]
     Active Substance: OXYCODONE HYDROCHLORIDE
     Indication: Postoperative analgesia
     Dosage: TIME INTERVAL: AS NECESSARY: 5-10 MG
     Route: 048
     Dates: start: 20191127
  10. AZATHIOPRINE [Suspect]
     Active Substance: AZATHIOPRINE
     Indication: Colitis ulcerative
     Route: 048
     Dates: start: 20150801, end: 20160413
  11. AZATHIOPRINE [Suspect]
     Active Substance: AZATHIOPRINE
     Indication: Colitis ulcerative
     Route: 048
     Dates: start: 20160414, end: 20170302

REACTIONS (1)
  - Colorectal adenoma [Not Recovered/Not Resolved]

NARRATIVE: CASE EVENT DATE: 20230524
